FAERS Safety Report 7526377-6 (Version None)
Quarter: 2011Q2

REPORT INFORMATION
  Report Type: 
  Country: None (occurrence: None)
  Receive Date: 20110606
  Receipt Date: 20110523
  Transmission Date: 20111010
  Serious: Yes (Death)
  Sender: FDA-Public Use
  Company Number: IT-CELGENEUS-083-20785-11053085

PATIENT
  Age: 79 Year
  Sex: Female

DRUGS (3)
  1. PREDNISONE [Concomitant]
     Indication: MYELOPROLIFERATIVE DISORDER
     Dosage: 12.5 MILLIGRAM
     Route: 065
     Dates: start: 20101001
  2. THALIDOMIDE [Suspect]
     Indication: MYELOPROLIFERATIVE DISORDER
     Dosage: 50 MILLIGRAM
     Route: 048
     Dates: start: 20101001
  3. WARFARIN SODIUM [Concomitant]
     Indication: PROPHYLAXIS
     Route: 065

REACTIONS (1)
  - INTESTINAL ISCHAEMIA [None]
